FAERS Safety Report 10461137 (Version 1)
Quarter: 2014Q3

REPORT INFORMATION
  Report Type: Spontaneous
  Country: US (occurrence: None)
  Receive Date: 20140917
  Receipt Date: 20140917
  Transmission Date: 20150326
  Serious: Yes (Hospitalization, Other)
  Sender: FDA-Public Use
  Company Number: None

PATIENT
  Age: 68 Year
  Sex: Female
  Weight: 55 kg

DRUGS (15)
  1. IBUPROFEN. [Concomitant]
     Active Substance: IBUPROFEN
  2. LISINOPRIL AND HYDROCHLOROTHIAZIDE [Concomitant]
     Active Substance: HYDROCHLOROTHIAZIDE\LISINOPRIL
  3. OXYCODONE/APAP [Concomitant]
     Active Substance: ACETAMINOPHEN\OXYCODONE HYDROCHLORIDE
  4. CLONAZEPAM. [Concomitant]
     Active Substance: CLONAZEPAM
  5. SIMVASTATIN. [Concomitant]
     Active Substance: SIMVASTATIN
  6. LOPERAMIDE [Concomitant]
     Active Substance: LOPERAMIDE
  7. ASPIRIN. [Concomitant]
     Active Substance: ASPIRIN
  8. BIOTIN [Concomitant]
     Active Substance: BIOTIN
  9. DRONABINOL. [Concomitant]
     Active Substance: DRONABINOL
  10. LUTEIN [Concomitant]
     Active Substance: LUTEIN
  11. POTASSIUM CHLORIDE. [Concomitant]
     Active Substance: POTASSIUM CHLORIDE
  12. OMEPRAZOLE AND PANTOPRAZOLE? [Concomitant]
  13. STIVARGA [Suspect]
     Active Substance: REGORAFENIB
     Indication: RECTAL CANCER METASTATIC
     Dates: start: 20140910, end: 20140914
  14. DIPHENOXYLATE [Concomitant]
     Active Substance: DIPHENOXYLATE
  15. APAP [Concomitant]
     Active Substance: ACETAMINOPHEN

REACTIONS (2)
  - Chest pain [None]
  - Myocardial infarction [None]

NARRATIVE: CASE EVENT DATE: 20140914
